FAERS Safety Report 5422366-6 (Version None)
Quarter: 2007Q3

REPORT INFORMATION
  Report Type: 
  Country: None (occurrence: None)
  Receive Date: 20070822
  Receipt Date: 20070817
  Transmission Date: 20080115
  Serious: Yes (Disabling)
  Sender: FDA-Public Use
  Company Number: US-MERCK-0708USA02085

PATIENT
  Age: 52 Year
  Sex: Male
  Weight: 127 kg

DRUGS (2)
  1. JANUVIA [Suspect]
     Route: 048
     Dates: end: 20070101
  2. [THERAPY UNSPECIFIED] [Concomitant]
     Route: 065

REACTIONS (2)
  - ANOREXIA [None]
  - WEIGHT DECREASED [None]
